FAERS Safety Report 8218890-3 (Version None)
Quarter: 2012Q1

REPORT INFORMATION
  Report Type: 
  Country: None (occurrence: None)
  Receive Date: 20120319
  Receipt Date: 20120315
  Transmission Date: 20120608
  Serious: Yes (Death, Life-Threatening, Hospitalization, Other)
  Sender: FDA-Public Use
  Company Number: PHHO2010TW12081

PATIENT
  Sex: Female
  Weight: 39 kg

DRUGS (6)
  1. AFINITOR [Suspect]
     Dosage: DOUBLE BLIND
     Route: 048
     Dates: start: 20100812, end: 20100815
  2. AMLODIPINE [Concomitant]
  3. FLURBIPROFEN [Concomitant]
     Indication: PAIN
  4. AFINITOR [Suspect]
     Indication: GASTRIC CANCER
     Dosage: CODE NOT BROKEN
     Dates: start: 20100812, end: 20100815
  5. LABETALOL HCL [Concomitant]
  6. AFINITOR [Suspect]
     Dosage: DOUBLE BLIND
     Route: 048
     Dates: start: 20100825, end: 20100830

REACTIONS (16)
  - MULTI-ORGAN FAILURE [None]
  - PANCYTOPENIA [None]
  - SEPTIC SHOCK [None]
  - DYSPNOEA [None]
  - SOMNOLENCE [None]
  - LYMPHOEDEMA [None]
  - HYPOTENSION [None]
  - ASTHENIA [None]
  - RESPIRATORY DISTRESS [None]
  - SHOCK [None]
  - URINARY TRACT INFECTION [None]
  - HYPERTENSION [None]
  - DISSEMINATED INTRAVASCULAR COAGULATION [None]
  - PYREXIA [None]
  - LOCAL SWELLING [None]
  - NEOPLASM PROGRESSION [None]
